FAERS Safety Report 17820137 (Version 1)
Quarter: 2020Q2

REPORT INFORMATION
  Report Type: Report from Study
  Country: IT (occurrence: IT)
  Receive Date: 20200525
  Receipt Date: 20200525
  Transmission Date: 20200714
  Serious: Yes (Other)
  Sender: FDA-Public Use
  Company Number: IT-ROCHE-2607558

PATIENT
  Sex: Female

DRUGS (2)
  1. VISMODEGIB. [Suspect]
     Active Substance: VISMODEGIB
     Route: 065
  2. VISMODEGIB. [Suspect]
     Active Substance: VISMODEGIB
     Indication: BASAL CELL CARCINOMA
     Dosage: INTERRUPTED FOR 12 WEEKS
     Route: 065

REACTIONS (3)
  - Muscle spasms [Unknown]
  - Gastrointestinal disorder [Unknown]
  - Fatigue [Unknown]
